FAERS Safety Report 10506051 (Version 2)
Quarter: 2014Q4

REPORT INFORMATION
  Report Type: Spontaneous
  Country: BE (occurrence: BE)
  Receive Date: 20141008
  Receipt Date: 20141008
  Transmission Date: 20150528
  Serious: Yes (Life-Threatening)
  Sender: FDA-Public Use
  Company Number: BE-GLAXOSMITHKLINE-B1024102A

PATIENT

DRUGS (2)
  1. CIPRAMIL [Concomitant]
     Active Substance: CITALOPRAM HYDROBROMIDE
     Indication: DEPRESSION
  2. LAMBIPOL [Suspect]
     Active Substance: LAMOTRIGINE
     Indication: BIPOLAR DISORDER
     Dosage: UNK
     Route: 065
     Dates: start: 20140708, end: 20140813

REACTIONS (14)
  - Feeling cold [Unknown]
  - Ageusia [Unknown]
  - Nausea [Unknown]
  - Musculoskeletal stiffness [Unknown]
  - Headache [Unknown]
  - Dysgeusia [Unknown]
  - Irritability [Unknown]
  - Blood pressure increased [Unknown]
  - Hyperhidrosis [Unknown]
  - Emotional disorder [Unknown]
  - Rash maculo-papular [Recovered/Resolved]
  - Clumsiness [Unknown]
  - Feeling cold [Unknown]
  - Chills [Unknown]

NARRATIVE: CASE EVENT DATE: 20140728
